FAERS Safety Report 16417966 (Version 3)
Quarter: 2019Q3

REPORT INFORMATION
  Report Type: Spontaneous
  Country: JP (occurrence: JP)
  Receive Date: 20190611
  Receipt Date: 20190711
  Transmission Date: 20191004
  Serious: Yes (Hospitalization, Other)
  Sender: FDA-Public Use
  Company Number: JP-009507513-1906JPN000600J

PATIENT
  Age: 44 Year
  Sex: Male
  Weight: 84 kg

DRUGS (5)
  1. KEYTRUDA [Suspect]
     Active Substance: PEMBROLIZUMAB
     Indication: NON-SMALL CELL LUNG CANCER
     Dosage: 200 MILLIGRAM, Q3W
     Route: 041
     Dates: start: 20190409, end: 20190605
  2. PACLITAXEL. [Suspect]
     Active Substance: PACLITAXEL
     Indication: NON-SMALL CELL LUNG CANCER
     Dosage: 384 MILLIGRAM
     Route: 041
     Dates: start: 20190409, end: 20190605
  3. BAKTAR [Suspect]
     Active Substance: SULFAMETHOXAZOLE\TRIMETHOPRIM
     Dosage: 2 DOSAGE FORM, QD
     Route: 048
     Dates: start: 20190619, end: 20190619
  4. CARBOPLATIN. [Suspect]
     Active Substance: CARBOPLATIN
     Indication: NON-SMALL CELL LUNG CANCER
     Dosage: 850 MILLIGRAM, ONCE
     Route: 041
     Dates: start: 20190409, end: 20190605
  5. BAKTAR [Suspect]
     Active Substance: SULFAMETHOXAZOLE\TRIMETHOPRIM
     Indication: INFECTION PROPHYLAXIS
     Dosage: 1 DOSAGE FORM, QD
     Route: 048
     Dates: start: 20190419, end: 20190618

REACTIONS (3)
  - Blood lactate dehydrogenase increased [Unknown]
  - Febrile neutropenia [Recovered/Resolved]
  - Skin disorder [Recovering/Resolving]

NARRATIVE: CASE EVENT DATE: 20190419
